FAERS Safety Report 8823520 (Version 4)
Quarter: 2013Q4

REPORT INFORMATION
  Report Type: Spontaneous
  Country: US (occurrence: US)
  Receive Date: 20121003
  Receipt Date: 20131128
  Transmission Date: 20140711
  Serious: Yes (Other)
  Sender: FDA-Public Use
  Company Number: US-ASTRAZENECA-2010SE32059

PATIENT
  Age: 49 Year
  Sex: Male
  Weight: 126.6 kg

DRUGS (8)
  1. SEROQUEL [Suspect]
     Indication: BIPOLAR DISORDER
     Route: 048
  2. SEROQUEL [Suspect]
     Indication: BIPOLAR DISORDER
     Route: 048
     Dates: start: 201003
  3. SEROQUEL [Suspect]
     Indication: BIPOLAR DISORDER
     Dosage: REDUCED HIS DOSE OF SEROQUEL AND TITRATED HIS DOSE UPWARD UNTIL HE REACHED THE 400 MG
     Route: 048
  4. SEROQUEL [Suspect]
     Indication: BIPOLAR DISORDER
     Route: 048
     Dates: end: 201311
  5. LORTAB [Concomitant]
     Dosage: 10/500 MG QID
     Route: 048
  6. ADDERALL [Concomitant]
     Route: 048
  7. XANAX [Concomitant]
     Route: 048
  8. METFORMIN [Concomitant]
     Indication: DIABETES MELLITUS
     Route: 048

REACTIONS (15)
  - Loss of consciousness [Recovered/Resolved]
  - Fall [Recovered/Resolved]
  - Head injury [Recovered/Resolved]
  - Nausea [Unknown]
  - Diarrhoea [Unknown]
  - Headache [Unknown]
  - Malaise [Unknown]
  - Abdominal pain upper [Unknown]
  - Nasopharyngitis [Unknown]
  - Feeling abnormal [Unknown]
  - Nervousness [Unknown]
  - Malaise [Unknown]
  - Dizziness [Recovered/Resolved]
  - Drug dispensing error [Unknown]
  - Drug dose omission [Unknown]
